FAERS Safety Report 21544571 (Version 3)
Quarter: 2022Q4

REPORT INFORMATION
  Report Type: Spontaneous
  Country: FR (occurrence: FR)
  Receive Date: 20221102
  Receipt Date: 20221124
  Transmission Date: 20230112
  Serious: Yes (Other)
  Sender: FDA-Public Use
  Company Number: None

PATIENT
  Age: 12 Year
  Sex: Female
  Weight: 53 kg

DRUGS (2)
  1. CLOBAZAM [Interacting]
     Active Substance: CLOBAZAM
     Indication: Epilepsy
     Dosage: 5 MG, QD
     Route: 048
     Dates: start: 20220305
  2. CANNABIDIOL [Interacting]
     Active Substance: CANNABIDIOL
     Indication: Epilepsy
     Dosage: 2.25 ML IN THE MORNING AND EVENING
     Route: 048
     Dates: start: 20220305

REACTIONS (2)
  - Sedation [Recovered/Resolved]
  - Drug interaction [Unknown]

NARRATIVE: CASE EVENT DATE: 20220404
